FAERS Safety Report 23984485 (Version 1)
Quarter: 2024Q2

REPORT INFORMATION
  Report Type: Spontaneous
  Country: US (occurrence: US)
  Receive Date: 20240618
  Receipt Date: 20240618
  Transmission Date: 20240716
  Serious: No
  Sender: FDA-Public Use
  Company Number: US-SA-SAC20240614000713

PATIENT
  Age: 63 Year
  Sex: Male

DRUGS (9)
  1. DUPIXENT [Suspect]
     Active Substance: DUPILUMAB
     Indication: Dermatitis atopic
     Dosage: 300 MG, QOW
     Route: 058
  2. JARDIANCE [Concomitant]
     Active Substance: EMPAGLIFLOZIN
  3. METFORMIN [Concomitant]
     Active Substance: METFORMIN HYDROCHLORIDE
  4. TAMSULOSIN [Concomitant]
     Active Substance: TAMSULOSIN
  5. GLYBURIDE [Concomitant]
     Active Substance: GLYBURIDE
  6. SIMVASTATIN [Concomitant]
     Active Substance: SIMVASTATIN
  7. LISINOPRIL [Concomitant]
     Active Substance: LISINOPRIL
  8. CLOBETASOL [Concomitant]
     Active Substance: CLOBETASOL
  9. VITAMINS [Concomitant]
     Active Substance: VITAMINS

REACTIONS (1)
  - Injection site pain [Unknown]
